FAERS Safety Report 7902942-9 (Version None)
Quarter: 2011Q4

REPORT INFORMATION
  Report Type: 
  Country: None (occurrence: None)
  Receive Date: 20111109
  Receipt Date: 20111028
  Transmission Date: 20120403
  Serious: Yes (Hospitalization)
  Sender: FDA-Public Use
  Company Number: NL-JNJFOC-20051104504

PATIENT
  Sex: Female
  Weight: 60 kg

DRUGS (6)
  1. INFLIXIMAB, RECOMBINANT [Suspect]
     Indication: RHEUMATOID ARTHRITIS
     Dosage: 10MG/KG -MOST RECENT DOSE
     Route: 042
     Dates: start: 20010718, end: 20030626
  2. FOSAMAX [Concomitant]
     Indication: OSTEOPOROSIS
     Route: 065
     Dates: start: 20050811
  3. CYCLOSPORINE [Concomitant]
     Route: 065
     Dates: start: 20040428
  4. METHOTREXATE [Concomitant]
     Indication: RHEUMATOID ARTHRITIS
     Route: 065
     Dates: start: 20040428
  5. PREDNISONE [Concomitant]
     Route: 065
     Dates: start: 20040428
  6. FOLIC ACID [Concomitant]
     Route: 065
     Dates: start: 20040428

REACTIONS (4)
  - HYPERTENSION [None]
  - URINARY TRACT INFECTION [None]
  - HYPERCHOLESTEROLAEMIA [None]
  - THALAMIC INFARCTION [None]
